FAERS Safety Report 8532427-0 (Version None)
Quarter: 2012Q3

REPORT INFORMATION
  Report Type: 
  Country: None (occurrence: None)
  Receive Date: 20120724
  Receipt Date: 20120716
  Transmission Date: 20120928
  Serious: No
  Sender: FDA-Public Use
  Company Number: US-BIOGENIDEC-2012BI025643

PATIENT
  Age: 48 Year
  Sex: Female

DRUGS (2)
  1. AVONEX [Suspect]
     Indication: MULTIPLE SCLEROSIS
     Route: 030
     Dates: start: 19980501, end: 20030101
  2. AVONEX [Suspect]
     Route: 030
     Dates: start: 20030101, end: 20120701

REACTIONS (6)
  - PARAESTHESIA [None]
  - BLINDNESS UNILATERAL [None]
  - GAIT DISTURBANCE [None]
  - VISION BLURRED [None]
  - HYPOAESTHESIA [None]
  - BALANCE DISORDER [None]
